FAERS Safety Report 12999203 (Version 2)
Quarter: 2017Q1

REPORT INFORMATION
  Report Type: Spontaneous
  Country: US (occurrence: US)
  Receive Date: 20161205
  Receipt Date: 20170105
  Transmission Date: 20170428
  Serious: Yes (Hospitalization)
  Sender: FDA-Public Use
  Company Number: US-PFIZER INC-2016509881

PATIENT
  Age: 66 Year
  Sex: Male

DRUGS (4)
  1. ROSUVASTATIN. [Concomitant]
     Active Substance: ROSUVASTATIN
     Indication: HYPERLIPIDAEMIA
     Dosage: UNK
     Dates: start: 201208
  2. PIPERACILLIN AND TAZOBACTAM [Concomitant]
     Active Substance: PIPERACILLIN SODIUM\TAZOBACTAM SODIUM
     Indication: PNEUMONIA ASPIRATION
     Dosage: 3.375 G, 3X/DAY (EVERY 8 HOURS)
     Dates: start: 2013
  3. GEMCITABINE HYDROCHLORIDE. [Suspect]
     Active Substance: GEMCITABINE HYDROCHLORIDE
     Indication: LUNG SQUAMOUS CELL CARCINOMA STAGE III
     Dosage: 1000 MG/M2, CYCLIC (ON DAY 1 AND DAY 8, REPEATED EVERY 3 WEEKS FOR 4 CYCLES)
     Dates: start: 20121212, end: 20130220
  4. CISPLATIN. [Concomitant]
     Active Substance: CISPLATIN
     Indication: LUNG SQUAMOUS CELL CARCINOMA STAGE III
     Dosage: 60 MG/M2, CYCLIC (DAY 1, REPEATED EVERY 3 WEEKS FOR 4 CYCLES)
     Dates: start: 20121212, end: 20130220

REACTIONS (3)
  - Recall phenomenon [Recovering/Resolving]
  - Myositis [Recovering/Resolving]
  - Pseudocellulitis [Recovering/Resolving]

NARRATIVE: CASE EVENT DATE: 201302
